FAERS Safety Report 6136324-X (Version None)
Quarter: 2009Q1

REPORT INFORMATION
  Report Type: 
  Country: None (occurrence: None)
  Receive Date: 20090330
  Receipt Date: 20090319
  Transmission Date: 20090719
  Serious: Yes (Hospitalization)
  Sender: FDA-Public Use
  Company Number: FR-ELI_LILLY_AND_COMPANY-FR200903004803

PATIENT
  Sex: Female

DRUGS (11)
  1. BYETTA [Suspect]
     Dosage: 5 UG, 2/D
     Route: 058
     Dates: start: 20080530, end: 20080601
  2. KARDEGIC /00002703/ [Concomitant]
     Dosage: 75 MG, UNK
     Route: 048
  3. FERROUS SULFATE TAB [Concomitant]
     Route: 048
  4. MOPRAL [Concomitant]
     Route: 048
  5. UMULINE [Concomitant]
     Route: 058
  6. SIMVASTATINE TEVA [Concomitant]
     Route: 048
     Dates: end: 20080602
  7. MOTILIUM [Concomitant]
     Route: 048
     Dates: start: 20080530, end: 20080605
  8. PRIMPERAN /00041901/ [Concomitant]
     Route: 048
     Dates: start: 20080531, end: 20080531
  9. AMLOR [Concomitant]
     Route: 048
     Dates: start: 20080529, end: 20080602
  10. LANTUS [Concomitant]
     Route: 058
     Dates: start: 20080527, end: 20080530
  11. SPASFON [Concomitant]
     Route: 048
     Dates: start: 20080529, end: 20080603

REACTIONS (2)
  - HYPOAESTHESIA [None]
  - PARAESTHESIA [None]
